FAERS Safety Report 12674493 (Version 1)
Quarter: 2016Q3

REPORT INFORMATION
  Report Type: Spontaneous
  Country: US (occurrence: US)
  Receive Date: 20160822
  Receipt Date: 20160822
  Transmission Date: 20161109
  Serious: No
  Sender: FDA-Public Use
  Company Number: US-BEH-2015056346

PATIENT
  Sex: Female
  Weight: 62.6 kg

DRUGS (24)
  1. ZEMAIRA [Suspect]
     Active Substance: .ALPHA.1-PROTEINASE INHIBITOR HUMAN
     Indication: ENZYME ABNORMALITY
     Route: 042
  2. ZEMAIRA [Suspect]
     Active Substance: .ALPHA.1-PROTEINASE INHIBITOR HUMAN
     Indication: COMPLEMENT FACTOR ABNORMAL
  3. EPIPEN [Concomitant]
     Active Substance: EPINEPHRINE
  4. ADVAIR HFA [Concomitant]
     Active Substance: FLUTICASONE PROPIONATE\SALMETEROL XINAFOATE
  5. FLONASE [Concomitant]
     Active Substance: FLUTICASONE PROPIONATE
  6. CALCIUM [Concomitant]
     Active Substance: CALCIUM
  7. DIOVAN [Concomitant]
     Active Substance: VALSARTAN
  8. MELATONIN [Concomitant]
     Active Substance: MELATONIN
  9. SIMVASTATIN. [Concomitant]
     Active Substance: SIMVASTATIN
  10. FLAXSEED [Concomitant]
     Active Substance: FLAX SEED
  11. SPIRIVA [Concomitant]
     Active Substance: TIOTROPIUM BROMIDE MONOHYDRATE
  12. ASPIRIN EC [Concomitant]
     Active Substance: ASPIRIN
  13. LIDOCAINE/PRILOCAINE [Concomitant]
     Active Substance: LIDOCAINE\PRILOCAINE
  14. NORMAL SALINE [Concomitant]
     Active Substance: SODIUM CHLORIDE
  15. LOTRIMIN CREAM [Concomitant]
  16. HEPARIN [Concomitant]
     Active Substance: HEPARIN SODIUM
  17. FIBER THERAPY [Concomitant]
     Active Substance: METHYLCELLULOSE (4000 MPA.S)
  18. MULTIVITAMIN [Concomitant]
     Active Substance: VITAMINS
  19. VITAMIN D [Concomitant]
     Active Substance: CHOLECALCIFEROL
  20. METOPROLOL. [Concomitant]
     Active Substance: METOPROLOL
  21. SERTRALINE [Concomitant]
     Active Substance: SERTRALINE HYDROCHLORIDE
  22. DIPHENHYDRAMINE. [Concomitant]
     Active Substance: DIPHENHYDRAMINE
  23. SODIUM CHLORIDE. [Concomitant]
     Active Substance: SODIUM CHLORIDE
  24. ALLEGRA [Concomitant]
     Active Substance: FEXOFENADINE HYDROCHLORIDE

REACTIONS (1)
  - Urticaria [Recovered/Resolved]
